FAERS Safety Report 22628705 (Version 1)
Quarter: 2023Q2

REPORT INFORMATION
  Report Type: Spontaneous
  Country: BR (occurrence: BR)
  Receive Date: 20230622
  Receipt Date: 20230622
  Transmission Date: 20230722
  Serious: Yes (Other)
  Sender: FDA-Public Use
  Company Number: BR-BAYER-2023A085347

PATIENT
  Age: 74 Year
  Sex: Male
  Weight: 72 kg

DRUGS (1)
  1. NEXAVAR [Suspect]
     Active Substance: SORAFENIB
     Indication: Hepatic cancer
     Dosage: UNK

REACTIONS (1)
  - Intestinal metastasis [None]
